FAERS Safety Report 23291530 (Version 2)
Quarter: 2024Q2

REPORT INFORMATION
  Report Type: Report from Study
  Country: IN (occurrence: IN)
  Receive Date: 20231213
  Receipt Date: 20240627
  Transmission Date: 20240717
  Serious: Yes (Hospitalization)
  Sender: FDA-Public Use
  Company Number: IN-ROCHE-3471824

PATIENT
  Age: 59 Year
  Sex: Female

DRUGS (2)
  1. PERJETA [Suspect]
     Active Substance: PERTUZUMAB
     Indication: Breast cancer metastatic
     Route: 042
     Dates: start: 20231115
  2. PERJETA [Suspect]
     Active Substance: PERTUZUMAB
     Route: 042

REACTIONS (2)
  - Platelet count decreased [Unknown]
  - Fatigue [Unknown]
